FAERS Safety Report 26048750 (Version 2)
Quarter: 2025Q4

REPORT INFORMATION
  Report Type: Spontaneous
  Country: BR (occurrence: BR)
  Receive Date: 20251115
  Receipt Date: 20251119
  Transmission Date: 20260117
  Serious: Yes (Hospitalization)
  Sender: ABBVIE
  Company Number: BR-ABBVIE-6544478

PATIENT
  Sex: Male
  Weight: 118 kg

DRUGS (2)
  1. SKYRIZI [Suspect]
     Active Substance: RISANKIZUMAB-RZAA
     Indication: Psoriasis
     Dosage: 150 MG/ML, 1 DOSE, WITHOUT IT FOR 4 MONTHS
     Route: 058
     Dates: start: 2024
  2. SKYRIZI [Suspect]
     Active Substance: RISANKIZUMAB-RZAA
     Dosage: 150 MG/ML, 1 DOSE
     Route: 058

REACTIONS (4)
  - Injection site necrosis [Unknown]
  - Injection site inflammation [Unknown]
  - Haemochromatosis [Unknown]
  - Glucose tolerance impaired [Unknown]
